FAERS Safety Report 9369848 (Version 1)
Quarter: 2013Q2

REPORT INFORMATION
  Report Type: Spontaneous
  Country: FR (occurrence: FR)
  Receive Date: 20130626
  Receipt Date: 20130626
  Transmission Date: 20140414
  Serious: Yes (Hospitalization)
  Sender: FDA-Public Use
  Company Number: FR-BRISTOL-MYERS SQUIBB COMPANY-19028133

PATIENT
  Age: 53 Year
  Sex: Male

DRUGS (14)
  1. COAPROVEL [Suspect]
     Dates: start: 20121002
  2. FUROSEMIDE [Suspect]
     Dosage: INTERR ON 17APR2013
     Route: 048
     Dates: start: 20130305
  3. SUTENT [Suspect]
     Route: 048
     Dates: start: 20120816, end: 20130417
  4. PANTOPRAZOLE [Suspect]
     Dosage: GASTRO-RESISTANT TABLET
     Route: 048
     Dates: start: 201211, end: 20130417
  5. JANUMET [Concomitant]
     Dosage: 1DF:50/1000MG?IN MRNG
  6. DIAMICRON [Concomitant]
     Dosage: MRNG
     Dates: start: 2011
  7. LANTUS [Concomitant]
     Dosage: 1DF:16UNITS
     Dates: start: 201203
  8. NOVORAPID [Concomitant]
     Dates: start: 201209
  9. APROVEL [Concomitant]
     Dates: start: 201104
  10. AMLOR [Concomitant]
     Dates: start: 201107
  11. LEVOTHYROX [Concomitant]
     Dates: start: 20121215
  12. SUTENT [Concomitant]
  13. ESOMEPRAZOLE [Concomitant]
     Dates: start: 201208
  14. METFORMIN HCL [Concomitant]

REACTIONS (3)
  - Diabetes mellitus inadequate control [Recovered/Resolved]
  - Hypertriglyceridaemia [Recovering/Resolving]
  - Hypercholesterolaemia [Recovering/Resolving]
